FAERS Safety Report 6165033-6 (Version None)
Quarter: 2009Q2

REPORT INFORMATION
  Report Type: 
  Country: None (occurrence: None)
  Receive Date: 20090423
  Receipt Date: 20090415
  Transmission Date: 20091009
  Serious: Yes (Hospitalization, Disabling)
  Sender: FDA-Public Use
  Company Number: US-CELGENEUS-163-21880-09040319

PATIENT
  Sex: Male

DRUGS (2)
  1. REVLIMID [Suspect]
     Indication: MULTIPLE MYELOMA
     Route: 048
     Dates: start: 20090201, end: 20090328
  2. REVLIMID [Suspect]
     Route: 048
     Dates: start: 20090330

REACTIONS (8)
  - ANAEMIA [None]
  - ARTHRALGIA [None]
  - BLOOD POTASSIUM DECREASED [None]
  - BONE PAIN [None]
  - DEHYDRATION [None]
  - DIARRHOEA [None]
  - FATIGUE [None]
  - PAIN [None]
